FAERS Safety Report 6910387-3 (Version None)
Quarter: 2010Q3

REPORT INFORMATION
  Report Type: 
  Country: None (occurrence: None)
  Receive Date: 20100806
  Receipt Date: 20100802
  Transmission Date: 20110219
  Serious: Yes (Death, Hospitalization, Other)
  Sender: FDA-Public Use
  Company Number: NL-SANOFI-AVENTIS-2010SA044077

PATIENT
  Age: 53 Year
  Sex: Female

DRUGS (7)
  1. OXALIPLATIN [Suspect]
     Route: 042
     Dates: start: 20100331, end: 20100331
  2. OXALIPLATIN [Suspect]
     Route: 042
     Dates: start: 20100421, end: 20100421
  3. XELODA [Suspect]
     Route: 048
     Dates: start: 20100331
  4. XELODA [Suspect]
     Route: 048
     Dates: start: 20100421
  5. ZOFRAN [Concomitant]
     Indication: PREMEDICATION
  6. DEXAMETHASONE [Concomitant]
     Indication: PREMEDICATION
  7. PARACETAMOL [Concomitant]

REACTIONS (8)
  - C-REACTIVE PROTEIN INCREASED [None]
  - CARDIAC ARREST [None]
  - DEHYDRATION [None]
  - DIARRHOEA [None]
  - FEBRILE NEUTROPENIA [None]
  - INTESTINAL OBSTRUCTION [None]
  - MUCOUS STOOLS [None]
  - SEPSIS [None]
